FAERS Safety Report 6128759-6 (Version None)
Quarter: 2009Q1

REPORT INFORMATION
  Report Type: 
  Country: None (occurrence: None)
  Receive Date: 20090319
  Receipt Date: 20090304
  Transmission Date: 20090719
  Serious: Yes (Hospitalization)
  Sender: FDA-Public Use
  Company Number: 1000005204

PATIENT
  Age: 67 Year
  Sex: Male

DRUGS (12)
  1. ESCITALOPRAM [Suspect]
     Dosage: 20 MG (20 MG, IN 1 D), ORAL
     Route: 048
     Dates: end: 20080513
  2. ESCITALOPRAM [Suspect]
     Dosage: 10 MG (10 MG, 1 IN 1 D), ORAL
     Route: 048
     Dates: start: 20080514
  3. VALPROATE SODIUM [Suspect]
     Indication: GRAND MAL CONVULSION
     Dosage: 1200 MG (1200 MG, 1 IN 1 D), ORAL
     Route: 048
     Dates: start: 20080502
  4. OMEP [Suspect]
     Dosage: 40 MG (40 MG, 1 IN 1 D), ORAL
     Route: 048
  5. HALDOL [Suspect]
     Dosage: 1 MG (1 MG, 1 IN 1 D), ORAL
     Route: 048
     Dates: start: 20080502, end: 20080514
  6. HALDOL [Suspect]
     Dosage: 5 MG (5 MG, 1 IN 1 D), ORAL
     Route: 048
     Dates: start: 20080515, end: 20080526
  7. HALDOL [Suspect]
     Dosage: 2 MG (2 MG, 1 IN 1 D), ORAL
     Route: 048
     Dates: start: 20080527
  8. SEROQUEL [Suspect]
     Dosage: 50 MG (50 MG, 1 IN 1 D), ORAL
     Route: 048
     Dates: start: 20080430, end: 20080525
  9. SEROQUEL [Suspect]
     Dosage: 25 MG (25 MG, 1 IN 1 D), ORAL
     Route: 048
     Dates: start: 20080526
  10. TAVOR [Concomitant]
  11. BISOPROLOL FUMARATE [Concomitant]
  12. SIMVAHEXAL [Concomitant]

REACTIONS (11)
  - ASPARTATE AMINOTRANSFERASE INCREASED [None]
  - BLOOD CALCIUM DECREASED [None]
  - DEPRESSIVE DELUSION [None]
  - ELECTROCARDIOGRAM REPOLARISATION ABNORMALITY [None]
  - ELECTROCARDIOGRAM ST SEGMENT ELEVATION [None]
  - EXTRAPYRAMIDAL DISORDER [None]
  - FEMORAL NECK FRACTURE [None]
  - GRAND MAL CONVULSION [None]
  - HYPONATRAEMIA [None]
  - INTERNATIONAL NORMALISED RATIO DECREASED [None]
  - SINUS BRADYCARDIA [None]
